FAERS Safety Report 8485746 (Version 2)
Quarter: 2013Q2

REPORT INFORMATION
  Report Type: Spontaneous
  Country: US (occurrence: US)
  Receive Date: 20120330
  Receipt Date: 20130401
  Transmission Date: 20140414
  Serious: Yes (Other)
  Sender: FDA-Public Use
  Company Number: CHPA2012US005315

PATIENT
  Age: 55 Year
  Sex: Female

DRUGS (2)
  1. EXCEDRIN EXTRA STRENGTH [Suspect]
     Indication: HERNIA PAIN
     Dosage: 2 DF, Q4H OR SO, PRN
     Route: 048
  2. EXCEDRIN EXTRA STRENGTH [Suspect]
     Indication: PAIN
     Dosage: UNK , UNK
     Route: 048
     Dates: end: 2002

REACTIONS (5)
  - Hernia [Not Recovered/Not Resolved]
  - Therapeutic response unexpected [Unknown]
  - Cough [Unknown]
  - Off label use [Unknown]
  - Inappropriate schedule of drug administration [Unknown]
